FAERS Safety Report 4843002-3 (Version None)
Quarter: 2005Q4

REPORT INFORMATION
  Report Type: 
  Country: None (occurrence: None)
  Receive Date: 20051201
  Receipt Date: 20010706
  Transmission Date: 20060501
  Serious: Yes (Hospitalization)
  Sender: FDA-Public Use
  Company Number: PR-ROCHE-263869

PATIENT
  Age: 43 Year
  Sex: Male
  Weight: 86.3 kg

DRUGS (6)
  1. INTERFERON ALFA-2A [Suspect]
     Route: 058
     Dates: start: 20010116
  2. RIBAVIRIN [Suspect]
     Dosage: WITH FOOD.
     Route: 048
     Dates: start: 20010116
  3. PREVACID [Concomitant]
     Dates: start: 20010123
  4. FE SULPHATE [Concomitant]
     Route: 048
     Dates: start: 20010123
  5. CIPRO [Concomitant]
     Dates: start: 20010605
  6. VITAMIN B-12 [Concomitant]
     Dates: start: 20010703

REACTIONS (3)
  - HAEMOGLOBIN DECREASED [None]
  - INGROWING NAIL [None]
  - OSTEOMYELITIS [None]
